FAERS Safety Report 6194300-5 (Version None)
Quarter: 2009Q2

REPORT INFORMATION
  Report Type: 
  Country: None (occurrence: None)
  Receive Date: 20090519
  Receipt Date: 20090506
  Transmission Date: 20091009
  Serious: Yes (Hospitalization)
  Sender: FDA-Public Use
  Company Number: GB-RANBAXY-2009RR-24040

PATIENT

DRUGS (4)
  1. RANITIDINE TABLETS BP 300 MG [Suspect]
     Indication: HIATUS HERNIA
     Dosage: 300 MG, QD
     Route: 048
     Dates: start: 20090313, end: 20090502
  2. ASPIRIN [Concomitant]
     Indication: BLOOD PRESSURE INCREASED
     Dosage: 75 MG, QD
  3. DOTHIEPIN [Concomitant]
     Indication: DEPRESSION
     Dosage: 75 MG, QD
  4. CITALOPRAM HYDROBROMIDE [Concomitant]
     Indication: DEPRESSION
     Dosage: 10 MG, QD

REACTIONS (2)
  - DIZZINESS [None]
  - TINNITUS [None]
